FAERS Safety Report 7354296-7 (Version None)
Quarter: 2011Q1

REPORT INFORMATION
  Report Type: 
  Country: None (occurrence: None)
  Receive Date: 20110316
  Receipt Date: 20090729
  Transmission Date: 20110831
  Serious: No
  Sender: FDA-Public Use
  Company Number: 2009BI024111

PATIENT
  Sex: Female

DRUGS (1)
  1. TYSABRI [Suspect]
     Indication: MULTIPLE SCLEROSIS
     Route: 042
     Dates: start: 20071218

REACTIONS (10)
  - PAIN [None]
  - POOR VENOUS ACCESS [None]
  - INFUSION SITE HAEMATOMA [None]
  - FATIGUE [None]
  - URINARY TRACT INFECTION [None]
  - INFUSION SITE PAIN [None]
  - BALANCE DISORDER [None]
  - WHITE BLOOD CELL COUNT DECREASED [None]
  - VEIN DISORDER [None]
  - HYPOAESTHESIA [None]
